FAERS Safety Report 12540638 (Version 1)
Quarter: 2016Q3

REPORT INFORMATION
  Report Type: Spontaneous
  Country: US (occurrence: US)
  Receive Date: 20160708
  Receipt Date: 20160708
  Transmission Date: 20161109
  Serious: No
  Sender: FDA-Public Use
  Company Number: US-TEVA-653457USA

PATIENT
  Age: 59 Year
  Sex: Female

DRUGS (4)
  1. ZECUITY [Suspect]
     Active Substance: SUMATRIPTAN SUCCINATE
     Indication: MIGRAINE
     Route: 062
     Dates: start: 20160315, end: 20160315
  2. ZECUITY [Suspect]
     Active Substance: SUMATRIPTAN SUCCINATE
     Route: 062
     Dates: start: 20160405, end: 20160405
  3. ZECUITY [Suspect]
     Active Substance: SUMATRIPTAN SUCCINATE
     Route: 062
     Dates: start: 20160412, end: 20160412
  4. ZECUITY [Suspect]
     Active Substance: SUMATRIPTAN SUCCINATE
     Route: 062
     Dates: start: 20160320, end: 20160320

REACTIONS (8)
  - Application site paraesthesia [Unknown]
  - Application site urticaria [Unknown]
  - Wrong technique in product usage process [Unknown]
  - Application site pain [Unknown]
  - Application site bruise [Recovered/Resolved]
  - Application site discolouration [Not Recovered/Not Resolved]
  - Application site erythema [Recovering/Resolving]
  - Application site exfoliation [Unknown]

NARRATIVE: CASE EVENT DATE: 20160315
